FAERS Safety Report 23661561 (Version 1)
Quarter: 2024Q1

REPORT INFORMATION
  Report Type: Report from Study
  Country: US (occurrence: US)
  Receive Date: 20240322
  Receipt Date: 20240322
  Transmission Date: 20240410
  Serious: Yes (Life-Threatening, Hospitalization, Other)
  Sender: FDA-Public Use
  Company Number: US-002147023-NVSC2024US047576

PATIENT
  Age: 3 Year
  Sex: Male
  Weight: 12.6 kg

DRUGS (1)
  1. ILARIS [Suspect]
     Active Substance: CANAKINUMAB
     Indication: Juvenile idiopathic arthritis
     Dosage: 72 MG, OTHER (Q 21 DAYS)
     Route: 058
     Dates: start: 20230407, end: 202402

REACTIONS (4)
  - Cardiac failure [Recovering/Resolving]
  - Interstitial lung disease [Recovering/Resolving]
  - Pulmonary hypertension [Unknown]
  - Right ventricular failure [Unknown]

NARRATIVE: CASE EVENT DATE: 20240201
